FAERS Safety Report 4901027-3 (Version None)
Quarter: 2006Q1

REPORT INFORMATION
  Report Type: 
  Country: None (occurrence: None)
  Receive Date: 20060201
  Receipt Date: 20060113
  Transmission Date: 20060701
  Serious: Yes (Hospitalization)
  Sender: FDA-Public Use
  Company Number: HU200512002472

PATIENT
  Sex: Female

DRUGS (3)
  1. HUMAN INSULIN (RDNA ORIGIN) NPH (HUMAN INSULIN) (RDNA ORIGIN) [Suspect]
     Dosage: 34 IU, 2/D SUBCUTANEOUS
     Route: 058
  2. HUMULIN R [Suspect]
     Dosage: SUBCUTANEOUS
     Route: 058
  3. VITAMIN D (THIAMINE HYDRICHLORIDE) [Concomitant]

REACTIONS (4)
  - DEVICE FAILURE [None]
  - HYPERGLYCAEMIA [None]
  - HYPERTENSION [None]
  - PHARMACEUTICAL PRODUCT COMPLAINT [None]
